FAERS Safety Report 18545386 (Version 4)
Quarter: 2020Q4

REPORT INFORMATION
  Report Type: Spontaneous
  Country: GB (occurrence: GB)
  Receive Date: 20201125
  Receipt Date: 20201221
  Transmission Date: 20210114
  Serious: Yes (Life-Threatening, Hospitalization)
  Sender: FDA-Public Use
  Company Number: GB-BIOGEN-2020BI00945232

PATIENT
  Age: 8 Year
  Sex: Female

DRUGS (1)
  1. SPINRAZA [Suspect]
     Active Substance: NUSINERSEN
     Indication: SPINAL MUSCULAR ATROPHY
     Route: 037

REACTIONS (11)
  - Decreased immune responsiveness [Unknown]
  - Fatigue [Unknown]
  - Prescribed underdose [Unknown]
  - Dyspepsia [Unknown]
  - Pneumonia [Unknown]
  - Nasopharyngitis [Unknown]
  - Pulmonary thrombosis [Unknown]
  - COVID-19 [Unknown]
  - Infection [Unknown]
  - Respiratory disorder [Unknown]
  - Sepsis [Unknown]

NARRATIVE: CASE EVENT DATE: 202011
